FAERS Safety Report 10128415 (Version 1)
Quarter: 2014Q2

REPORT INFORMATION
  Report Type: Spontaneous
  Country: GB (occurrence: GB)
  Receive Date: 20140428
  Receipt Date: 20140428
  Transmission Date: 20141212
  Serious: Yes (Other)
  Sender: FDA-Public Use
  Company Number: GB-009507513-1404GBR013812

PATIENT
  Age: 43 Year
  Sex: Male
  Weight: 71.21 kg

DRUGS (8)
  1. LOSARTAN POTASSIUM [Suspect]
     Indication: HYPERTENSION
     Dosage: 50 MG, UNK
     Route: 048
     Dates: start: 20140301, end: 20140415
  2. AMLODIPINE [Concomitant]
     Indication: HYPERTENSION
  3. NAPROXEN [Concomitant]
  4. ALBUTEROL [Concomitant]
  5. SINGULAIR [Concomitant]
  6. SYMBICORT [Concomitant]
  7. TRAMADOL HYDROCHLORIDE [Concomitant]
  8. VALSARTAN [Concomitant]
     Indication: HYPERTENSION

REACTIONS (3)
  - Aggression [Recovering/Resolving]
  - Depression [Recovering/Resolving]
  - Headache [Recovered/Resolved]
